FAERS Safety Report 9423384 (Version 1)
Quarter: 2013Q3

REPORT INFORMATION
  Report Type: Spontaneous
  Country: US (occurrence: US)
  Receive Date: 20130726
  Receipt Date: 20130726
  Transmission Date: 20140515
  Serious: Yes (Other)
  Sender: FDA-Public Use
  Company Number: US-GILEAD-2013-0079768

PATIENT
  Age: 68 Year
  Sex: Female

DRUGS (3)
  1. VIREAD [Suspect]
     Indication: CHRONIC HEPATITIS B
     Dosage: 300 MG, UNK
  2. VESICARE [Concomitant]
     Indication: HYPERTONIC BLADDER
  3. GEMFIBROZIL [Concomitant]
     Indication: HYPERTRIGLYCERIDAEMIA

REACTIONS (4)
  - Neoplasm [Unknown]
  - Decreased appetite [Unknown]
  - Weight decreased [Not Recovered/Not Resolved]
  - Malaise [Unknown]
